FAERS Safety Report 8190091-7 (Version None)
Quarter: 2012Q1

REPORT INFORMATION
  Report Type: 
  Country: None (occurrence: None)
  Receive Date: 20120307
  Receipt Date: 20120307
  Transmission Date: 20120608
  Serious: No
  Sender: FDA-Public Use
  Company Number: None

PATIENT
  Age: 38 Year
  Sex: Male
  Weight: 70.306 kg

DRUGS (1)
  1. PROPECIA [Suspect]
     Indication: ALOPECIA
     Dosage: 1.0 MG
     Route: 048
     Dates: start: 20000101, end: 20110517

REACTIONS (6)
  - PENIS DISORDER [None]
  - LIBIDO DECREASED [None]
  - INSOMNIA [None]
  - DEPRESSION [None]
  - ORGASMIC SENSATION DECREASED [None]
  - ERECTILE DYSFUNCTION [None]
